FAERS Safety Report 9639925 (Version 2)
Quarter: 2013Q4

REPORT INFORMATION
  Report Type: Spontaneous
  Country: US (occurrence: US)
  Receive Date: 20131023
  Receipt Date: 20131023
  Transmission Date: 20140711
  Serious: No
  Sender: FDA-Public Use
  Company Number: US-MYLANLABS-2012S1020414

PATIENT
  Age: 49 Year
  Sex: Male
  Weight: 69.4 kg

DRUGS (2)
  1. CARVEDILOL TABLETS [Suspect]
     Indication: CARDIOMYOPATHY
     Dates: start: 20120416
  2. MIDODRINE [Concomitant]
     Indication: ORTHOSTATIC HYPOTENSION
     Dates: start: 2005

REACTIONS (2)
  - Palpitations [Recovered/Resolved]
  - Tachycardia [Recovered/Resolved]
